FAERS Safety Report 9567599 (Version 1)
Quarter: 2013Q3

REPORT INFORMATION
  Report Type: Spontaneous
  Country: US (occurrence: US)
  Receive Date: 20130930
  Receipt Date: 20130930
  Transmission Date: 20140515
  Serious: No
  Sender: FDA-Public Use
  Company Number: US-AMGEN-USASP2013002564

PATIENT
  Age: 67 Year
  Sex: Female

DRUGS (2)
  1. ENBREL [Suspect]
     Indication: PSORIATIC ARTHROPATHY
     Dosage: 50 MG, TWICE A WEEK
     Dates: start: 20040610
  2. ENBREL [Suspect]
     Indication: PSORIASIS

REACTIONS (3)
  - Psoriatic arthropathy [Recovering/Resolving]
  - Musculoskeletal stiffness [Recovering/Resolving]
  - Psoriasis [Recovering/Resolving]
